FAERS Safety Report 7919527-0 (Version None)
Quarter: 2011Q4

REPORT INFORMATION
  Report Type: 
  Country: None (occurrence: None)
  Receive Date: 20111115
  Receipt Date: 20111107
  Transmission Date: 20120403
  Serious: Yes (Hospitalization, Other)
  Sender: FDA-Public Use
  Company Number: 1000014203

PATIENT
  Age: 48 Year
  Sex: Male

DRUGS (3)
  1. DIAZEPAM [Suspect]
  2. BACLOFEN [Suspect]
  3. NEBIVOLOL HCL [Suspect]

REACTIONS (11)
  - MULTIPLE DRUG OVERDOSE INTENTIONAL [None]
  - HYPOKALAEMIA [None]
  - HYPOTENSION [None]
  - HEART RATE INCREASED [None]
  - DRUG ADMINISTRATION ERROR [None]
  - BRADYCARDIA [None]
  - CARDIAC ARREST [None]
  - UNRESPONSIVE TO STIMULI [None]
  - SUICIDE ATTEMPT [None]
  - HYPOGLYCAEMIA [None]
  - BLOOD PRESSURE INCREASED [None]
